FAERS Safety Report 5743261-9 (Version None)
Quarter: 2008Q2

REPORT INFORMATION
  Report Type: 
  Country: None (occurrence: None)
  Receive Date: 20080519
  Receipt Date: 20080507
  Transmission Date: 20081010
  Serious: Yes (Hospitalization, Other)
  Sender: FDA-Public Use
  Company Number: FR-PFIZER INC-2006012277

PATIENT
  Sex: Male
  Weight: 78 kg

DRUGS (8)
  1. SU-011,248 [Suspect]
     Indication: RENAL CELL CARCINOMA
     Route: 048
     Dates: start: 20051208, end: 20060104
  2. SU-011,248 [Suspect]
  3. CHLORPROMAZINE [Concomitant]
  4. MORPHINE [Concomitant]
  5. ORNITHINE OXOGLURATE [Concomitant]
  6. ALL OTHER THERAPEUTIC PRODUCTS [Concomitant]
  7. SODIUM POLYSTYRENE SULFONATE [Concomitant]
  8. ACETAMINOPHEN [Concomitant]

REACTIONS (5)
  - ANAEMIA [None]
  - ASTHENIA [None]
  - HYPERKALAEMIA [None]
  - HYPOALBUMINAEMIA [None]
  - HYPONATRAEMIA [None]
